FAERS Safety Report 9305206 (Version 2)
Quarter: 2013Q2

REPORT INFORMATION
  Report Type: Spontaneous
  Country: JP (occurrence: JP)
  Receive Date: 20130523
  Receipt Date: 20130617
  Transmission Date: 20140414
  Serious: Yes (Hospitalization)
  Sender: FDA-Public Use
  Company Number: JP-JNJFOC-20130510967

PATIENT
  Age: 72 Year
  Sex: Male
  Weight: 70 kg

DRUGS (10)
  1. XARELTO [Suspect]
     Indication: CEREBROVASCULAR ACCIDENT PROPHYLAXIS
     Route: 048
     Dates: start: 20130507, end: 20130513
  2. XARELTO [Suspect]
     Indication: CEREBROVASCULAR ACCIDENT PROPHYLAXIS
     Route: 048
     Dates: start: 20130503, end: 20130504
  3. XARELTO [Suspect]
     Indication: ATRIAL FIBRILLATION
     Route: 048
     Dates: start: 20130507, end: 20130513
  4. XARELTO [Suspect]
     Indication: ATRIAL FIBRILLATION
     Route: 048
     Dates: start: 20130503, end: 20130504
  5. PARIET [Concomitant]
     Route: 048
     Dates: start: 20051220
  6. GLACTIV [Concomitant]
     Route: 048
     Dates: start: 20120409
  7. AMLODIN [Concomitant]
     Route: 048
  8. PRAVASTATIN SODIUM [Concomitant]
     Route: 048
     Dates: start: 20080801
  9. AMARYL [Concomitant]
     Route: 048
     Dates: start: 20060228
  10. ACETAMINOPHEN [Concomitant]
     Route: 048
     Dates: start: 20130512

REACTIONS (1)
  - Cholecystitis [Recovering/Resolving]
